FAERS Safety Report 20021971 (Version 2)
Quarter: 2021Q4

REPORT INFORMATION
  Report Type: Spontaneous
  Country: US (occurrence: US)
  Receive Date: 20211102
  Receipt Date: 20211221
  Transmission Date: 20220303
  Serious: No
  Sender: FDA-Public Use
  Company Number: US-BoehringerIngelheim-2021-BI-135728

PATIENT
  Sex: Male

DRUGS (1)
  1. ATROVENT [Suspect]
     Active Substance: IPRATROPIUM BROMIDE
     Indication: Product used for unknown indication
     Dosage: FORM OF ADMIN: INHALATION AEROSOL
     Dates: start: 2016

REACTIONS (4)
  - Dizziness [Recovered/Resolved with Sequelae]
  - Drug ineffective [Unknown]
  - Dysgeusia [Unknown]
  - Product quality issue [Unknown]
